FAERS Safety Report 5091743-8 (Version None)
Quarter: 2006Q3

REPORT INFORMATION
  Report Type: 
  Country: None (occurrence: None)
  Receive Date: 20060829
  Receipt Date: 20060502
  Transmission Date: 20061208
  Serious: Yes (Hospitalization, Other)
  Sender: FDA-Public Use
  Company Number: US-BRISTOL-MYERS SQUIBB COMPANY-13364419

PATIENT
  Age: 69 Year
  Sex: Male
  Weight: 76 kg

DRUGS (8)
  1. ERBITUX [Suspect]
     Indication: NEOPLASM MALIGNANT
     Dosage: SECOND INFUSION ADMINISTERED ON 25-APR-2006.  INTERRUPTED X 1 WEEK.
     Route: 042
     Dates: start: 20060418, end: 20060418
  2. BENADRYL [Concomitant]
     Indication: PREMEDICATION
     Route: 042
     Dates: start: 20060418, end: 20060418
  3. COMPAZINE [Concomitant]
  4. DURAGESIC-100 [Concomitant]
  5. LORAZEPAM [Concomitant]
  6. MOTRIN [Concomitant]
  7. PREVACID [Concomitant]
  8. REGLAN [Concomitant]

REACTIONS (3)
  - BLISTER [None]
  - SWELLING FACE [None]
  - URTICARIA [None]
